FAERS Safety Report 4468582-1 (Version None)
Quarter: 2004Q3

REPORT INFORMATION
  Report Type: 
  Country: None (occurrence: None)
  Receive Date: 20040917
  Receipt Date: 20040720
  Transmission Date: 20050211
  Serious: No
  Sender: FDA-Public Use
  Company Number: US-JNJFOC-20040305947

PATIENT
  Age: 25 Year
  Sex: Female
  Weight: 68.9467 kg

DRUGS (1)
  1. ORTHO EVRA [Suspect]
     Indication: CONTRACEPTION

REACTIONS (2)
  - ABDOMINAL DISTENSION [None]
  - BREAST DISCHARGE [None]
